FAERS Safety Report 8905843 (Version 2)
Quarter: 2013Q2

REPORT INFORMATION
  Report Type: Spontaneous
  Country: US (occurrence: US)
  Receive Date: 20121113
  Receipt Date: 20130426
  Transmission Date: 20140414
  Serious: Yes (Other)
  Sender: FDA-Public Use
  Company Number: US-PFIZER INC-2012283200

PATIENT
  Age: 55 Year
  Sex: Female
  Weight: 63.95 kg

DRUGS (2)
  1. LYRICA [Suspect]
     Indication: PAIN
     Dosage: 50 MG, 3X/DAY
     Route: 048
     Dates: start: 20120815
  2. LYRICA [Suspect]
     Indication: TRIGEMINAL NEURALGIA
     Dosage: UNK
     Route: 048
     Dates: start: 201210, end: 2013

REACTIONS (11)
  - Oral disorder [Unknown]
  - Road traffic accident [Unknown]
  - Clavicle fracture [Unknown]
  - Rib fracture [Unknown]
  - Upper limb fracture [Unknown]
  - Dry mouth [Unknown]
  - Lip dry [Unknown]
  - Scab [Unknown]
  - Somnolence [Unknown]
  - Weight increased [Unknown]
  - Weight decreased [Unknown]
